FAERS Safety Report 4762421-7 (Version None)
Quarter: 2005Q3

REPORT INFORMATION
  Report Type: 
  Country: None (occurrence: None)
  Receive Date: 20050907
  Receipt Date: 20050901
  Transmission Date: 20060218
  Serious: Yes (Other)
  Sender: FDA-Public Use
  Company Number: 200512943FR

PATIENT
  Age: 65 Year
  Sex: Female

DRUGS (8)
  1. ARAVA [Suspect]
     Indication: RHEUMATOID ARTHRITIS
     Route: 048
     Dates: start: 20050401, end: 20050901
  2. ENBREL [Concomitant]
     Indication: RHEUMATOID ARTHRITIS
     Route: 042
     Dates: start: 20040201
  3. SULFASALAZINE [Concomitant]
     Indication: RHEUMATOID ARTHRITIS
     Route: 048
  4. OMEPRAZOLE [Concomitant]
     Route: 048
  5. ACTONEL [Concomitant]
     Route: 048
  6. IDEOS [Concomitant]
     Route: 048
  7. CORTANCYL [Concomitant]
     Indication: RHEUMATOID ARTHRITIS
     Route: 048
     Dates: start: 20041201
  8. CLARADOL [Concomitant]
     Route: 048

REACTIONS (2)
  - ALOPECIA [None]
  - SCLERITIS [None]
